FAERS Safety Report 9911691 (Version 1)
Quarter: 2014Q1

REPORT INFORMATION
  Report Type: Spontaneous
  Country: US (occurrence: US)
  Receive Date: 20140219
  Receipt Date: 20140219
  Transmission Date: 20141002
  Serious: No
  Sender: FDA-Public Use
  Company Number: US-ASTRAZENECA-2013SE89131

PATIENT
  Age: 73 Year
  Sex: Female
  Weight: 74.8 kg

DRUGS (17)
  1. LISINOPRIL HCTZ [Suspect]
     Indication: BLOOD PRESSURE ABNORMAL
     Dosage: 20 MG 12.5 MG DAILY
     Route: 048
  2. LISINOPRIL [Suspect]
     Indication: BLOOD PRESSURE ABNORMAL
     Dosage: LOW DOSE
     Route: 048
  3. LISINOPRIL [Suspect]
     Indication: BLOOD PRESSURE ABNORMAL
     Route: 048
  4. TOPROL XL [Suspect]
     Indication: VENTRICULAR EXTRASYSTOLES
     Route: 048
     Dates: start: 2003
  5. TOPROL XL [Suspect]
     Indication: HEART RATE IRREGULAR
     Route: 048
     Dates: start: 2003
  6. TOPROL XL [Suspect]
     Indication: VENTRICULAR EXTRASYSTOLES
     Dosage: GENERIC, 25 MG DAILY
     Route: 048
     Dates: start: 2007, end: 2007
  7. TOPROL XL [Suspect]
     Indication: HEART RATE IRREGULAR
     Dosage: GENERIC, 25 MG DAILY
     Route: 048
     Dates: start: 2007, end: 2007
  8. TOPROL XL [Suspect]
     Indication: VENTRICULAR EXTRASYSTOLES
     Route: 048
     Dates: start: 2007
  9. TOPROL XL [Suspect]
     Indication: HEART RATE IRREGULAR
     Route: 048
     Dates: start: 2007
  10. LIDODERM PATCH [Concomitant]
     Indication: INTERVERTEBRAL DISC DEGENERATION
     Dosage: NOT ASKED NA
     Route: 050
  11. OTC IBUPROFEN [Concomitant]
     Indication: BACK PAIN
     Dosage: NOT ASKED PRN
     Route: 048
  12. ASPIRIN [Concomitant]
     Route: 048
  13. ALAVERT [Concomitant]
     Indication: SEASONAL ALLERGY
     Dosage: NOT ASKED PRN
     Route: 048
  14. FLUTICASNE [Concomitant]
     Indication: RHINITIS ALLERGIC
     Dosage: NOT ASKED NA
     Route: 045
  15. XANAX [Concomitant]
     Indication: ANXIETY
     Route: 048
  16. CALCIUM [Concomitant]
     Indication: MINERAL SUPPLEMENTATION
     Dosage: NOT ASKED DAILY
     Route: 048
  17. B 12 [Concomitant]
     Indication: VITAMIN SUPPLEMENTATION
     Dosage: NOT ASKED DAILY
     Route: 048

REACTIONS (8)
  - Blood pressure increased [Not Recovered/Not Resolved]
  - Spinal osteoarthritis [Unknown]
  - Seasonal allergy [Unknown]
  - Sciatica [Unknown]
  - Erythema [Recovered/Resolved]
  - Pruritus [Recovered/Resolved]
  - Burning sensation [Recovered/Resolved]
  - Drug ineffective [Unknown]
